FAERS Safety Report 4515773-7 (Version None)
Quarter: 2004Q4

REPORT INFORMATION
  Report Type: 
  Country: None (occurrence: None)
  Receive Date: 20041129
  Receipt Date: 20041115
  Transmission Date: 20050328
  Serious: Yes (Hospitalization)
  Sender: FDA-Public Use
  Company Number: 200413513JP

PATIENT
  Age: 66 Year
  Sex: Female
  Weight: 55 kg

DRUGS (9)
  1. ARAVA [Suspect]
     Indication: RHEUMATOID ARTHRITIS
     Dosage: 100 MG/DAY PO
     Route: 048
     Dates: start: 20031031, end: 20031102
  2. ARAVA [Suspect]
     Indication: RHEUMATOID ARTHRITIS
     Dosage: 20 MG/DAY PO
     Route: 048
     Dates: start: 20031103, end: 20031109
  3. PREDNISOLONE [Concomitant]
  4. SELBEX [Concomitant]
  5. DIBASIC CALCIUM PHOSPHATE [Concomitant]
  6. CLINORIL [Concomitant]
  7. GLAKAY [Concomitant]
  8. FERROMIA [Concomitant]
  9. ACTONEL [Concomitant]

REACTIONS (8)
  - ALANINE AMINOTRANSFERASE INCREASED [None]
  - ASPARTATE AMINOTRANSFERASE INCREASED [None]
  - BLOOD ALKALINE PHOSPHATASE INCREASED [None]
  - GAMMA-GLUTAMYLTRANSFERASE INCREASED [None]
  - HEPATIC FUNCTION ABNORMAL [None]
  - PRURITUS GENERALISED [None]
  - SKIN DISORDER [None]
  - VOMITING [None]
